FAERS Safety Report 7394071-0 (Version None)
Quarter: 2011Q2

REPORT INFORMATION
  Report Type: 
  Country: None (occurrence: None)
  Receive Date: 20110405
  Receipt Date: 20110330
  Transmission Date: 20111010
  Serious: Yes (Hospitalization, Other)
  Sender: FDA-Public Use
  Company Number: US-JNJFOC-20100602983

PATIENT
  Sex: Male

DRUGS (8)
  1. LIPITOR [Concomitant]
     Indication: BLOOD CHOLESTEROL INCREASED
  2. VITAMIN TAB [Concomitant]
  3. CLINDAMYCIN [Concomitant]
     Indication: INFECTION
  4. VASOTEC [Concomitant]
     Indication: HYPERTENSION
  5. PREDNISONE [Suspect]
     Indication: BRONCHITIS
  6. CELEBREX [Concomitant]
     Indication: ARTHRITIS
  7. LEVAQUIN [Suspect]
     Indication: UPPER RESPIRATORY TRACT INFECTION
     Route: 048
  8. OXYCODONE [Concomitant]
     Indication: PAIN

REACTIONS (5)
  - TENDON RUPTURE [None]
  - NEUROPATHY PERIPHERAL [None]
  - TARSAL TUNNEL SYNDROME [None]
  - ROTATOR CUFF SYNDROME [None]
  - FOOT DEFORMITY [None]
